FAERS Safety Report 4842024-6 (Version None)
Quarter: 2005Q4

REPORT INFORMATION
  Report Type: 
  Country: None (occurrence: None)
  Receive Date: 20051130
  Receipt Date: 20051124
  Transmission Date: 20060501
  Serious: Yes (Death)
  Sender: FDA-Public Use
  Company Number: PHBS2005CN17355

PATIENT

DRUGS (1)
  1. SANDOSTATIN LAR [Suspect]

REACTIONS (1)
  - DEATH [None]
